FAERS Safety Report 8333287-3 (Version None)
Quarter: 2012Q2

REPORT INFORMATION
  Report Type: 
  Country: None (occurrence: None)
  Receive Date: 20120503
  Receipt Date: 20120423
  Transmission Date: 20120825
  Serious: No
  Sender: FDA-Public Use
  Company Number: US-BAYER-2012-040825

PATIENT
  Age: 56 Year
  Sex: Female

DRUGS (2)
  1. VIVELLE-DOT [Concomitant]
     Indication: HOT FLUSH
     Route: 062
  2. MIRENA [Suspect]
     Indication: HYPERPLASIA
     Dosage: 20 MCG/24HR, CONT
     Route: 015

REACTIONS (1)
  - DEVICE MISUSE [None]
